FAERS Safety Report 14640768 (Version 1)
Quarter: 2018Q1

REPORT INFORMATION
  Report Type: Spontaneous
  Country: BR (occurrence: BR)
  Receive Date: 20180315
  Receipt Date: 20180315
  Transmission Date: 20180509
  Serious: Yes (Other)
  Sender: FDA-Public Use
  Company Number: BR-BAYER-2018-049923

PATIENT
  Sex: Male

DRUGS (1)
  1. GADOVIST [Suspect]
     Active Substance: GADOBUTROL
     Indication: NUCLEAR MAGNETIC RESONANCE IMAGING HEART
     Dosage: 6 ML, ONCE
     Dates: start: 20180308, end: 20180308

REACTIONS (3)
  - Confusional state [None]
  - Ischaemic stroke [None]
  - Hemiparesis [None]

NARRATIVE: CASE EVENT DATE: 20180309
